FAERS Safety Report 13334207 (Version 4)
Quarter: 2018Q4

REPORT INFORMATION
  Report Type: Spontaneous
  Country: US (occurrence: US)
  Receive Date: 20170314
  Receipt Date: 20181224
  Transmission Date: 20190204
  Serious: Yes (Other)
  Sender: FDA-Public Use
  Company Number: US-JNJFOC-20170111995

PATIENT
  Age: 66 Year
  Sex: Female
  Weight: 54 kg

DRUGS (37)
  1. IMBRUVICA [Suspect]
     Active Substance: IBRUTINIB
     Indication: CHRONIC LYMPHOCYTIC LEUKAEMIA
     Route: 048
     Dates: start: 2016, end: 2017
  2. IMMUNOGLOBULIN HUMAN NORMAL [Concomitant]
     Active Substance: HUMAN IMMUNOGLOBULIN G
     Dosage: EVERY FEW MONTHS
  3. VITAMIN D3 [Concomitant]
     Active Substance: CHOLECALCIFEROL
     Indication: VITAMIN SUPPLEMENTATION
     Route: 048
  4. CYANOCOBALAMIN W/FOLIC ACID/PYRIDOXINE HCL [Concomitant]
     Dosage: 4X PER WEEK
  5. BEANO [Concomitant]
     Active Substance: ASPERGILLUS NIGER .ALPHA.-GALACTOSIDASE
     Dosage: 4-6 TIME WEEK
  6. MOMETASONE [Concomitant]
     Active Substance: MOMETASONE
  7. CHLORHEXIDINE [Concomitant]
     Active Substance: CHLORHEXIDINE
  8. HYDROXYZINE [Concomitant]
     Active Substance: HYDROXYZINE HYDROCHLORIDE
  9. HYDROXYZINE HCL [Concomitant]
     Active Substance: HYDROXYZINE HYDROCHLORIDE
     Indication: HYPERSENSITIVITY
     Dosage: 10 MG ONCE NIGHTLY, 25 TO 30 MG PRIOR TO IVIG
  10. VITAMINA B12 [Concomitant]
     Indication: VITAMIN SUPPLEMENTATION
     Route: 060
  11. MAXALT [Concomitant]
     Active Substance: RIZATRIPTAN BENZOATE
     Indication: MIGRAINE
     Dosage: DISINTEGRATING TABLETS
  12. MAGNESIUM GLUCONATE [Concomitant]
     Active Substance: MAGNESIUM GLUCONATE
     Indication: VITAMIN SUPPLEMENTATION
     Route: 048
  13. IMBRUVICA [Suspect]
     Active Substance: IBRUTINIB
     Indication: CHRONIC LYMPHOCYTIC LEUKAEMIA
     Route: 048
     Dates: start: 20150401
  14. IMBRUVICA [Suspect]
     Active Substance: IBRUTINIB
     Indication: CHRONIC LYMPHOCYTIC LEUKAEMIA
     Route: 048
     Dates: start: 201604, end: 2016
  15. IMBRUVICA [Suspect]
     Active Substance: IBRUTINIB
     Indication: CHRONIC LYMPHOCYTIC LEUKAEMIA
     Route: 048
     Dates: start: 2017
  16. XIFAXAN [Concomitant]
     Active Substance: RIFAXIMIN
  17. FLUTICASONE. [Concomitant]
     Active Substance: FLUTICASONE
     Indication: HYPERSENSITIVITY
  18. ONDANSETRON [Concomitant]
     Active Substance: ONDANSETRON
     Indication: ABDOMINAL DISCOMFORT
     Dosage: 2 PO AM
  19. BIFIDOBACTERIUM LACTIS [Concomitant]
     Active Substance: BIFIDOBACTERIUM ANIMALIS LACTIS
  20. TYLENOL [Concomitant]
     Active Substance: ACETAMINOPHEN
     Indication: PAIN
     Dosage: AS NEEDED
  21. IMBRUVICA [Suspect]
     Active Substance: IBRUTINIB
     Indication: CHRONIC LYMPHOCYTIC LEUKAEMIA
     Route: 048
     Dates: start: 201701
  22. IMBRUVICA [Suspect]
     Active Substance: IBRUTINIB
     Indication: CHRONIC LYMPHOCYTIC LEUKAEMIA
     Route: 048
     Dates: start: 20170401
  23. VITAMIN K2 [Concomitant]
     Active Substance: MENAQUINONE 6
  24. VITAMIN K2 [Concomitant]
     Active Substance: MENAQUINONE 6
  25. VITAMINA B12 [Concomitant]
     Indication: VITAMIN SUPPLEMENTATION
     Route: 060
  26. DORZOLAMIDE [Concomitant]
     Active Substance: DORZOLAMIDE
  27. IMBRUVICA [Suspect]
     Active Substance: IBRUTINIB
     Indication: CHRONIC LYMPHOCYTIC LEUKAEMIA
     Route: 048
     Dates: start: 20160429
  28. VITAMIN D3 [Concomitant]
     Active Substance: CHOLECALCIFEROL
     Indication: VITAMIN SUPPLEMENTATION
     Dosage: 500 IU K2 90 MCG, QD
     Route: 048
  29. EPIPEN [Concomitant]
     Active Substance: EPINEPHRINE
  30. LATANOPROST. [Concomitant]
     Active Substance: LATANOPROST
  31. BROMELAIN [Concomitant]
     Active Substance: BROMELAINS
     Indication: ENZYME SUPPLEMENTATION
     Route: 048
  32. IMBRUVICA [Suspect]
     Active Substance: IBRUTINIB
     Indication: CHRONIC LYMPHOCYTIC LEUKAEMIA
     Route: 048
     Dates: start: 2017
  33. HYDROCORTISONE. [Concomitant]
     Active Substance: HYDROCORTISONE
  34. CLINDAMYCIN. [Concomitant]
     Active Substance: CLINDAMYCIN
     Dosage: ONCE A MONTH
  35. ELDERBERRY [Concomitant]
     Active Substance: HERBALS
     Indication: PHYTOTHERAPY
     Dosage: A FEW TIMES A MONTH
     Route: 065
  36. CHLORHEXIDINE GLUCONATE. [Concomitant]
     Active Substance: CHLORHEXIDINE GLUCONATE
     Dosage: ORAL RINSE
  37. NYSTATIN. [Concomitant]
     Active Substance: NYSTATIN

REACTIONS (30)
  - Glaucoma [Unknown]
  - Dysbacteriosis [Recovered/Resolved]
  - Weight decreased [Not Recovered/Not Resolved]
  - Gastrointestinal pain [Recovered/Resolved]
  - Discomfort [Unknown]
  - Fluid retention [Unknown]
  - Onychoclasis [Not Recovered/Not Resolved]
  - Gastrointestinal oedema [Recovered/Resolved]
  - Iron deficiency [Not Recovered/Not Resolved]
  - Peripheral swelling [Unknown]
  - Myalgia [Not Recovered/Not Resolved]
  - Fatigue [Not Recovered/Not Resolved]
  - Cataract [Unknown]
  - Skin exfoliation [Not Recovered/Not Resolved]
  - Product dose omission [Unknown]
  - Nausea [Not Recovered/Not Resolved]
  - Pain in extremity [Unknown]
  - Muscle spasms [Not Recovered/Not Resolved]
  - Visual impairment [Not Recovered/Not Resolved]
  - Flatulence [Recovered/Resolved]
  - Head injury [Unknown]
  - Muscle disorder [Unknown]
  - Hernia [Recovered/Resolved]
  - Skin fissures [Not Recovered/Not Resolved]
  - Muscle atrophy [Not Recovered/Not Resolved]
  - Bone pain [Not Recovered/Not Resolved]
  - Joint swelling [Recovering/Resolving]
  - Hypotonia [Unknown]
  - Muscular weakness [Unknown]
  - Abdominal discomfort [Not Recovered/Not Resolved]

NARRATIVE: CASE EVENT DATE: 201511
